FAERS Safety Report 6332797-8 (Version None)
Quarter: 2009Q3

REPORT INFORMATION
  Report Type: 
  Country: None (occurrence: None)
  Receive Date: 20090828
  Receipt Date: 20090820
  Transmission Date: 20100115
  Serious: Yes (Hospitalization)
  Sender: FDA-Public Use
  Company Number: B0590212A

PATIENT
  Age: 37 Year
  Sex: Male

DRUGS (2)
  1. AVANDIA [Suspect]
     Route: 065
     Dates: start: 20090710, end: 20090801
  2. MEDROL [Concomitant]

REACTIONS (1)
  - LOCAL REACTION [None]
